FAERS Safety Report 9835276 (Version 1)
Quarter: 2014Q1

REPORT INFORMATION
  Report Type: Spontaneous
  Country: US (occurrence: US)
  Receive Date: 20140122
  Receipt Date: 20140122
  Transmission Date: 20141002
  Serious: No
  Sender: FDA-Public Use
  Company Number: US-BRISTOL-MYERS SQUIBB COMPANY-19915016

PATIENT
  Age: 74 Year
  Sex: Female
  Weight: 52.15 kg

DRUGS (4)
  1. ELIQUIS [Suspect]
     Dosage: TABS,HALF IN THE MORNING AND HALF AT NIGHT.
     Dates: start: 201311
  2. FLECAINIDE [Suspect]
     Dates: start: 201311, end: 201312
  3. VIVELLE [Concomitant]
     Dosage: VIVELLE DOT
  4. AMIODARONE [Concomitant]

REACTIONS (4)
  - Erythema [Not Recovered/Not Resolved]
  - Acne [Unknown]
  - Burning sensation [Recovering/Resolving]
  - Drug administration error [Unknown]
